FAERS Safety Report 8100233-7 (Version None)
Quarter: 2012Q1

REPORT INFORMATION
  Report Type: 
  Country: None (occurrence: None)
  Receive Date: 20120131
  Receipt Date: 20120126
  Transmission Date: 20120608
  Serious: Yes (Other)
  Sender: FDA-Public Use
  Company Number: CA-ABBOTT-11P-028-0886121-00

PATIENT
  Sex: Male
  Weight: 60.8 kg

DRUGS (1)
  1. HUMIRA [Suspect]
     Indication: CROHN'S DISEASE
     Dates: start: 20090730, end: 20110601

REACTIONS (5)
  - URINARY TRACT INFECTION [None]
  - VESICAL FISTULA [None]
  - INTESTINAL RESECTION [None]
  - FISTULA [None]
  - INTESTINAL OBSTRUCTION [None]
